FAERS Safety Report 20702146 (Version 1)
Quarter: 2022Q2

REPORT INFORMATION
  Report Type: Spontaneous
  Country: US (occurrence: None)
  Receive Date: 20220411
  Receipt Date: 20220411
  Transmission Date: 20220721
  Serious: Yes (Other)
  Sender: FDA-Public Use
  Company Number: None

PATIENT
  Age: 62 Year
  Sex: Female

DRUGS (1)
  1. ATENOLOL [Suspect]
     Active Substance: ATENOLOL
     Indication: Atrial fibrillation
     Dosage: FREQUENCY : DAILY;?
     Route: 048

REACTIONS (4)
  - Atrial fibrillation [None]
  - Heart rate increased [None]
  - Miosis [None]
  - Photosensitivity reaction [None]

NARRATIVE: CASE EVENT DATE: 20220301
